FAERS Safety Report 7785836-1 (Version None)
Quarter: 2011Q3

REPORT INFORMATION
  Report Type: 
  Country: None (occurrence: None)
  Receive Date: 20110929
  Receipt Date: 20110929
  Transmission Date: 20111222
  Serious: Yes (Death)
  Sender: FDA-Public Use
  Company Number: JP-BAYER-2011-092109

PATIENT
  Sex: Male

DRUGS (1)
  1. NEXAVAR [Suspect]
     Indication: HEPATIC NEOPLASM MALIGNANT
     Dosage: UNK
     Route: 048
     Dates: start: 20101119, end: 20101126

REACTIONS (6)
  - DIARRHOEA [None]
  - HEADACHE [None]
  - DECREASED APPETITE [None]
  - MENINGITIS [None]
  - VISUAL FIELD DEFECT [None]
  - HEPATIC NEOPLASM MALIGNANT [None]
